FAERS Safety Report 21077683 (Version 4)
Quarter: 2025Q1

REPORT INFORMATION
  Report Type: Spontaneous
  Country: US (occurrence: US)
  Receive Date: 20220713
  Receipt Date: 20250124
  Transmission Date: 20250409
  Serious: Yes (Hospitalization, Other)
  Sender: PFIZER
  Company Number: US-PFIZER INC-202200952030

PATIENT
  Age: 79 Year
  Sex: Female

DRUGS (4)
  1. INLYTA [Suspect]
     Active Substance: AXITINIB
     Indication: Metastatic renal cell carcinoma
     Dosage: 5 MG, 2X/DAY (TAKE 1 TABLET (5 MG) EVERY 12 HOURS )
     Route: 048
     Dates: start: 20220527
  2. INLYTA [Suspect]
     Active Substance: AXITINIB
     Dosage: THREE 1MG TABLETS ORALLY EVERY 12 HOURS
     Route: 048
     Dates: start: 20220527, end: 202410
  3. AMLODIPINE [Concomitant]
     Active Substance: AMLODIPINE BESYLATE
  4. KEYTRUDA [Concomitant]
     Active Substance: PEMBROLIZUMAB

REACTIONS (5)
  - Pneumonia [Recovered/Resolved]
  - Neoplasm progression [Recovered/Resolved]
  - Blood pressure abnormal [Unknown]
  - Pain [Unknown]
  - Fatigue [Unknown]

NARRATIVE: CASE EVENT DATE: 20230410
